FAERS Safety Report 8876022 (Version 1)
Quarter: 2012Q4

REPORT INFORMATION
  Report Type: 
  Country: US (occurrence: US)
  Receive Date: 20121023
  Receipt Date: 20121023
  Transmission Date: 20130627
  Serious: No
  Sender: FDA-Public Use
  Company Number: US-VERTEX PHARMACEUTICAL INC.-2012-023202

PATIENT
  Age: 49 None
  Sex: Female
  Weight: 75 kg

DRUGS (8)
  1. INCIVEK [Suspect]
     Indication: HEPATITIS C
     Dosage: 750 mg, tid
     Route: 048
     Dates: start: 20120920
  2. RIBAVIRIN [Suspect]
     Indication: HEPATITIS C
     Dosage: 600mg AM, 400mg PM
     Route: 048
     Dates: start: 20120920
  3. PEGASYS [Suspect]
     Indication: HEPATITIS C
     Dosage: 180 ?g, UNK
     Route: 058
     Dates: start: 20120919
  4. GLIPIZIDE [Concomitant]
     Indication: DIABETES MELLITUS
     Dosage: 4 mg, qd
     Route: 048
  5. METFORMIN [Concomitant]
     Indication: DIABETES MELLITUS
     Dosage: 1000 mg, qd
     Route: 048
  6. AMLODIPINE [Concomitant]
     Indication: HYPERTENSION
     Dosage: 5 mg, qd
     Route: 048
  7. CYMBALTA [Concomitant]
     Indication: DEPRESSION
     Dosage: 30 mg, qd
     Route: 048
  8. RANITIDINE [Concomitant]
     Indication: GASTROOESOPHAGEAL REFLUX DISEASE
     Dosage: 0.5 mg, bid
     Route: 048

REACTIONS (3)
  - Abdominal pain upper [Recovered/Resolved]
  - Decreased appetite [Recovered/Resolved]
  - Rash pruritic [Not Recovered/Not Resolved]
